FAERS Safety Report 16873483 (Version 4)
Quarter: 2019Q4

REPORT INFORMATION
  Report Type: Spontaneous
  Country: US (occurrence: US)
  Receive Date: 20191001
  Receipt Date: 20191219
  Transmission Date: 20200122
  Serious: No
  Sender: FDA-Public Use
  Company Number: US-PFIZER INC-2019424071

PATIENT
  Age: 69 Year
  Sex: Female

DRUGS (2)
  1. IBRANCE [Suspect]
     Active Substance: PALBOCICLIB
     Indication: BREAST CANCER FEMALE
     Dosage: 125 MG, 1X/DAY
     Route: 048
     Dates: start: 20190914, end: 201909
  2. IBRANCE [Suspect]
     Active Substance: PALBOCICLIB
     Dosage: 100 MG, 1X/DAY
     Route: 048
     Dates: start: 20190916

REACTIONS (8)
  - Malaise [Unknown]
  - Dehydration [Unknown]
  - Decreased appetite [Unknown]
  - Weight increased [Unknown]
  - Dizziness [Unknown]
  - Nausea [Unknown]
  - Fatigue [Recovering/Resolving]
  - Hot flush [Unknown]

NARRATIVE: CASE EVENT DATE: 2019
